FAERS Safety Report 23195932 (Version 1)
Quarter: 2023Q4

REPORT INFORMATION
  Report Type: Spontaneous
  Country: FR (occurrence: FR)
  Receive Date: 20231117
  Receipt Date: 20231117
  Transmission Date: 20240109
  Serious: Yes (Hospitalization)
  Sender: FDA-Public Use
  Company Number: None

PATIENT
  Age: 88 Year
  Sex: Female
  Weight: 65 kg

DRUGS (12)
  1. BISOPROLOL FUMARATE [Suspect]
     Active Substance: BISOPROLOL FUMARATE
     Indication: Product used for unknown indication
     Dosage: UNIT DOSE:2.5MG,FREQUENCY TIME:1 DAY
  2. OMEPRAZOLE [Suspect]
     Active Substance: OMEPRAZOLE
     Indication: Product used for unknown indication
     Dosage: UNIT DOSE:20MG,FREQUENCY TIME:1 DAYS,THERAPY START DATE;NASK
     Dates: end: 20231008
  3. SIMVASTATIN [Suspect]
     Active Substance: SIMVASTATIN
     Indication: Product used for unknown indication
     Dosage: UNIT DOSE:20MG,FREQUENCY TIME:1 DAYS
  4. IRBESARTAN [Suspect]
     Active Substance: IRBESARTAN
     Indication: Hypertension
     Dosage: UNIT DOSE:150MG,FREQUENCY TIME:1 DAYS,THERAPY START DATE:NASK
     Dates: end: 20231008
  5. ACETAMINOPHEN [Suspect]
     Active Substance: ACETAMINOPHEN
     Indication: Pain
     Dosage: DOSE:1 DF,FREQUENCY TIME:1 AS REQUIRED
     Route: 065
  6. SERTRALINE [Suspect]
     Active Substance: SERTRALINE HYDROCHLORIDE
     Indication: Product used for unknown indication
     Dosage: UNIT DOSE:125MG,FREQUENCY TIME:1 DAY
  7. KARDEGIC [Suspect]
     Active Substance: ASPIRIN DL-LYSINE
     Indication: Thrombosis prophylaxis
     Dosage: SACHET-DOSE ,UNIT DOSE:1 DF, FREQUENCY TIME:1 DAY
  8. CRATAEGUS EXTRACT [Suspect]
     Active Substance: HAWTHORN LEAF WITH FLOWER
     Indication: Product used for unknown indication
     Dosage: UNIT DOSE:1 DF, FREQUENCY TIME:1 AS REQUIRED
  9. HYDROCHLOROTHIAZIDE [Suspect]
     Active Substance: HYDROCHLOROTHIAZIDE
     Indication: Hypertension
     Dosage: UNIT DOSE:12.5MG,FREQUENCY TIME:1 DAYS,THERAPY START DATE:NASK
     Dates: end: 20231008
  10. FOSAMAX [Suspect]
     Active Substance: ALENDRONATE SODIUM
     Indication: Product used for unknown indication
     Dosage: DOSE:1MG,FREQUENCY TIME:1 WEEK
     Dates: end: 202310
  11. CALCIUM CARBONATE [Suspect]
     Active Substance: CALCIUM CARBONATE
     Indication: Product used for unknown indication
     Dosage: UNIT DOSE:1 DF,FREQUENCY TIME:1 DAYS,THERAPY START DATE:NASK
     Dates: end: 20231008
  12. TIMOLOL MALEATE [Suspect]
     Active Substance: TIMOLOL MALEATE
     Indication: Product used for unknown indication
     Dosage: 1 MG/G, OPHTHALMIC GEL IN SINGLE-DOSE CONTAINER,UNIT DOSE:1 DF,FREQUENCY TIME:1 DAYS
     Dates: end: 20231008

REACTIONS (1)
  - Eosinophilic cellulitis [Not Recovered/Not Resolved]

NARRATIVE: CASE EVENT DATE: 20231001
